FAERS Safety Report 19624014 (Version 1)
Quarter: 2021Q3

REPORT INFORMATION
  Report Type: Spontaneous
  Country: GB (occurrence: GB)
  Receive Date: 20210728
  Receipt Date: 20210728
  Transmission Date: 20211014
  Serious: Yes (Hospitalization)
  Sender: FDA-Public Use
  Company Number: GB-MYLANLABS-2021M1045141

PATIENT
  Age: 82 Year
  Sex: Female

DRUGS (1)
  1. SERTRALINE [Suspect]
     Active Substance: SERTRALINE HYDROCHLORIDE
     Indication: ANXIETY
     Dosage: 50 MILLIGRAM, QD
     Route: 048
     Dates: start: 20210526, end: 20210608

REACTIONS (5)
  - Diarrhoea [Recovered/Resolved]
  - Agitation [Recovered/Resolved]
  - Sleep disorder [Recovered/Resolved]
  - Tremor [Recovered/Resolved]
  - Stress [Recovered/Resolved]
